APPROVED DRUG PRODUCT: FENOFIBRATE
Active Ingredient: FENOFIBRATE
Strength: 54MG
Dosage Form/Route: TABLET;ORAL
Application: A076433 | Product #001 | TE Code: AB
Applicant: RHODES PHARMACEUTICALS LP
Approved: May 13, 2005 | RLD: No | RS: No | Type: RX